FAERS Safety Report 4827640-X (Version None)
Quarter: 2005Q4

REPORT INFORMATION
  Report Type: 
  Country: None (occurrence: None)
  Receive Date: 20051110
  Receipt Date: 20051027
  Transmission Date: 20060501
  Serious: Yes (Hospitalization, Other)
  Sender: FDA-Public Use
  Company Number: 12591

PATIENT
  Age: 72 Year
  Sex: Female

DRUGS (3)
  1. AMIODARONE [Suspect]
     Dosage: 200 MG DAILY
  2. DIGOXN [Concomitant]
  3. ASPIRIN [Concomitant]

REACTIONS (3)
  - HEPATIC ENCEPHALOPATHY [None]
  - PULMONARY TOXICITY [None]
  - SEPSIS [None]
